FAERS Safety Report 10203152 (Version 3)
Quarter: 2014Q2

REPORT INFORMATION
  Report Type: Report from Study
  Country: US (occurrence: US)
  Receive Date: 20140529
  Receipt Date: 20140613
  Transmission Date: 20141212
  Serious: Yes (Other)
  Sender: FDA-Public Use
  Company Number: US-ROCHE-1360459

PATIENT
  Age: 73 Year
  Sex: Male
  Weight: 90.8 kg

DRUGS (4)
  1. AVASTIN [Suspect]
     Indication: COLORECTAL CANCER
     Dosage: START DATE: ABOUT ONE YEAR AGO
     Route: 042
     Dates: end: 20140520
  2. CAPECITABINE [Concomitant]
     Indication: NEOPLASM MALIGNANT
     Dosage: FREQUENCY: BID CYCLE ON 14 OFF 7?START DATE: ABOUT 1 YEAR AGO
     Route: 048
     Dates: end: 20140529
  3. TAMSULOSIN [Concomitant]
     Dosage: START DATE: 6 YEARS AGO
     Route: 048
  4. OMEPRAZOLE [Concomitant]
     Route: 048
     Dates: start: 2000

REACTIONS (4)
  - Disease progression [Not Recovered/Not Resolved]
  - Neoplasm [Unknown]
  - Drug effect decreased [Unknown]
  - Gingival bleeding [Unknown]
